FAERS Safety Report 6683438-1 (Version None)
Quarter: 2010Q2

REPORT INFORMATION
  Report Type: 
  Country: None (occurrence: None)
  Receive Date: 20100415
  Receipt Date: 20100405
  Transmission Date: 20101027
  Serious: Yes (Other)
  Sender: FDA-Public Use
  Company Number: MW-ABBOTT-10P-100-0636519-00

PATIENT
  Age: 27 Year
  Sex: Female

DRUGS (1)
  1. ALUVIA TABLETS [Suspect]
     Indication: PROPHYLAXIS AGAINST HIV INFECTION
     Dosage: 400/100 MG
     Route: 048
     Dates: start: 20100112, end: 20100302

REACTIONS (2)
  - ABORTION SPONTANEOUS [None]
  - DRUG EXPOSURE DURING PREGNANCY [None]
